FAERS Safety Report 10282944 (Version 2)
Quarter: 2014Q4

REPORT INFORMATION
  Report Type: Spontaneous
  Country: US (occurrence: US)
  Receive Date: 20140708
  Receipt Date: 20141211
  Transmission Date: 20150528
  Serious: No
  Sender: FDA-Public Use
  Company Number: US-BIOGENIDEC-2014BI064387

PATIENT
  Age: 50 Year
  Sex: Female

DRUGS (1)
  1. TYSABRI [Suspect]
     Active Substance: NATALIZUMAB
     Indication: MULTIPLE SCLEROSIS
     Route: 042
     Dates: start: 20090615, end: 20091214

REACTIONS (11)
  - Pharyngitis streptococcal [Unknown]
  - Blister [Recovered/Resolved]
  - Genital herpes [Unknown]
  - Thermal burn [Recovered/Resolved]
  - Infection [Unknown]
  - Drug specific antibody present [Recovered/Resolved]
  - Bronchitis [Unknown]
  - Influenza [Recovered/Resolved]
  - Gastric perforation [Recovered/Resolved]
  - Skin exfoliation [Recovered/Resolved]
  - Pyrexia [Recovered/Resolved]

NARRATIVE: CASE EVENT DATE: 200907
